FAERS Safety Report 9844749 (Version 1)
Quarter: 2014Q1

REPORT INFORMATION
  Report Type: Spontaneous
  Country: US (occurrence: None)
  Receive Date: 20140122
  Receipt Date: 20140122
  Transmission Date: 20141002
  Serious: Yes (Death)
  Sender: FDA-Public Use
  Company Number: B0958597A

PATIENT
  Age: 29 Year
  Sex: Female

DRUGS (5)
  1. MORPHINE [Suspect]
     Route: 048
  2. LAMOTRIGINE (FORMULATION UNKNOWN) (GENERIC) (LAMOTRIGINE) [Suspect]
     Route: 048
  3. OXYCODONE [Suspect]
     Route: 048
  4. SERTRALINE (FORMULATION UNKNOWN) (GENERIC) (SERTRALINE) [Suspect]
     Route: 048
  5. CYCLOBENZAPRINE HCL [Suspect]
     Route: 048

REACTIONS (2)
  - Drug abuse [None]
  - Exposure via ingestion [None]
